FAERS Safety Report 4948734-4 (Version None)
Quarter: 2006Q1

REPORT INFORMATION
  Report Type: 
  Country: None (occurrence: None)
  Receive Date: 20060317
  Receipt Date: 20060314
  Transmission Date: 20060701
  Serious: Yes (Hospitalization)
  Sender: FDA-Public Use
  Company Number: 2006BI002925

PATIENT
  Age: 43 Year
  Sex: Male

DRUGS (1)
  1. AVONEX [Suspect]
     Indication: MULTIPLE SCLEROSIS
     Dosage: 30 UG;QW;IM
     Route: 030
     Dates: start: 20051106

REACTIONS (5)
  - DYSPNOEA [None]
  - FLUID RETENTION [None]
  - NASOPHARYNGITIS [None]
  - PNEUMONIA [None]
  - SENSATION OF PRESSURE [None]
